FAERS Safety Report 7927501 (Version 3)
Quarter: 2014Q3

REPORT INFORMATION
  Report Type: Spontaneous
  Country: IR (occurrence: IR)
  Receive Date: 20110503
  Receipt Date: 20140729
  Transmission Date: 20150326
  Serious: Yes (Hospitalization, Other)
  Sender: FDA-Public Use
  Company Number: IR-RANBAXY-2011RR-43968

PATIENT
  Age: 40 Year
  Sex: Female

DRUGS (1)
  1. TOPIRAMATE. [Suspect]
     Active Substance: TOPIRAMATE
     Indication: MIGRAINE
     Dosage: 25 MG, TID
     Route: 065

REACTIONS (5)
  - Cataract [Recovering/Resolving]
  - Iridocyclitis [Recovering/Resolving]
  - Iris adhesions [Recovering/Resolving]
  - Angle closure glaucoma [Recovering/Resolving]
  - Myopia [Recovering/Resolving]
